FAERS Safety Report 11185990 (Version 6)
Quarter: 2015Q3

REPORT INFORMATION
  Report Type: Spontaneous
  Country: US (occurrence: US)
  Receive Date: 20150612
  Receipt Date: 20150930
  Transmission Date: 20151125
  Serious: Yes (Other)
  Sender: FDA-Public Use
  Company Number: US-PFIZER INC-2015193572

PATIENT
  Age: 64 Year
  Sex: Male
  Weight: 81 kg

DRUGS (5)
  1. EXFORGE [Concomitant]
     Active Substance: AMLODIPINE BESYLATE\VALSARTAN
     Dosage: UNK
  2. VITAMIN D [Concomitant]
     Active Substance: CHOLECALCIFEROL
     Dosage: UNK
  3. LISINOPRIL. [Concomitant]
     Active Substance: LISINOPRIL
     Dosage: UNK
  4. SUTENT [Suspect]
     Active Substance: SUNITINIB MALATE
     Indication: METASTATIC RENAL CELL CARCINOMA
     Dosage: 50 MG, CYCLIC (28 DAYS ON/14 DAYS OFF)
     Dates: start: 20150508, end: 20150903
  5. FLOMAX [Concomitant]
     Active Substance: TAMSULOSIN HYDROCHLORIDE
     Dosage: UNK

REACTIONS (21)
  - Muscle tightness [Unknown]
  - Oral pain [Unknown]
  - Disease progression [Unknown]
  - Erythema [Unknown]
  - Hypertension [Unknown]
  - Skin discolouration [Unknown]
  - Swelling face [Not Recovered/Not Resolved]
  - Lip blister [Unknown]
  - Metastatic renal cell carcinoma [Unknown]
  - Renal infarct [Unknown]
  - Haemorrhage [Not Recovered/Not Resolved]
  - Blister [Unknown]
  - Weight decreased [Unknown]
  - Hypotension [Unknown]
  - Peripheral swelling [Unknown]
  - Hepatomegaly [Unknown]
  - Liver function test abnormal [Unknown]
  - Pain in extremity [Not Recovered/Not Resolved]
  - Renal pain [Unknown]
  - Dysgeusia [Unknown]
  - Yellow skin [Unknown]
